FAERS Safety Report 8408142-0 (Version None)
Quarter: 2012Q2

REPORT INFORMATION
  Report Type: 
  Country: None (occurrence: None)
  Receive Date: 20120604
  Receipt Date: 20120530
  Transmission Date: 20120825
  Serious: Yes (Other)
  Sender: FDA-Public Use
  Company Number: US-PFIZER INC-2012053804

PATIENT
  Sex: Female

DRUGS (18)
  1. SINGULAIR [Concomitant]
     Dosage: 10 MG, 1X/DAY
     Route: 048
  2. FLONASE [Concomitant]
     Dosage: UNK
     Route: 045
  3. BENZONATATE [Concomitant]
     Dosage: 200 MG, 3X/DAY
     Route: 048
  4. FISH OIL [Concomitant]
     Dosage: UNK
     Route: 048
  5. VITAMIN E [Concomitant]
     Dosage: UNK
  6. CARVEDILOL [Concomitant]
     Dosage: UNK
     Route: 048
  7. LIPITOR [Suspect]
     Dosage: 40 MG, 1 QHS
     Route: 048
  8. NITROSTAT [Concomitant]
     Dosage: EVERY 5 MINUTE
     Route: 060
  9. NEXIUM [Concomitant]
     Dosage: 40 MG, 1X/DAY
     Route: 048
  10. IMITREX [Concomitant]
     Dosage: 100 MG, 1X/DAY
     Route: 048
  11. ACETAMINOPHEN [Concomitant]
     Dosage: UNK
  12. HYDROCODONE BITARTRATE + ACETAMINOPHEN [Concomitant]
     Indication: PAIN
     Dosage: 5MG-325MG (1, EVERY 4 HOURS)
     Route: 048
  13. AZITHROMYCIN [Concomitant]
     Dosage: 500 MG, 1X/DAY
     Route: 048
  14. ALBUTEROL [Concomitant]
     Dosage: UNK
  15. CALCIUM WITH VITAMIN D [Concomitant]
     Dosage: 200MG-200 INTL UNITS, 2X/DAY
     Route: 048
  16. BENADRYL [Concomitant]
     Dosage: 50 MG, UNK
     Route: 048
  17. AMITRIPTYLINE [Concomitant]
     Dosage: 75 MG, 2X/DAY
     Route: 048
  18. KYTRIL [Concomitant]
     Dosage: UNK

REACTIONS (1)
  - HIP SURGERY [None]
